FAERS Safety Report 5759375-3 (Version None)
Quarter: 2008Q2

REPORT INFORMATION
  Report Type: 
  Country: None (occurrence: None)
  Receive Date: 20080602
  Receipt Date: 20080527
  Transmission Date: 20081010
  Serious: Yes (Other)
  Sender: FDA-Public Use
  Company Number: 1-16197201/MED-08107

PATIENT
  Age: 60 Year
  Sex: Female

DRUGS (1)
  1. QUALAQUIN CAPSULES 324 MG [Suspect]
     Indication: MUSCLE SPASMS
     Dosage: 300 MG DAILY, ORAL
     Route: 048
     Dates: start: 20020501, end: 20050201

REACTIONS (7)
  - HUNGER [None]
  - HYPOGLYCAEMIA [None]
  - TREMOR [None]
  - TYPE 2 DIABETES MELLITUS [None]
  - VISION BLURRED [None]
  - WEIGHT DECREASED [None]
  - WEIGHT INCREASED [None]
